FAERS Safety Report 22338143 (Version 1)
Quarter: 2023Q2

REPORT INFORMATION
  Report Type: Spontaneous
  Country: US (occurrence: US)
  Receive Date: 20230518
  Receipt Date: 20230518
  Transmission Date: 20230722
  Serious: No
  Sender: FDA-Public Use
  Company Number: US-SA-SAC20230517001017

PATIENT
  Sex: Female
  Weight: 22.68 kg

DRUGS (11)
  1. DUPIXENT [Suspect]
     Active Substance: DUPILUMAB
     Indication: Dermatitis atopic
     Dosage: 300 MG, Q4W
     Route: 058
  2. DUPIXENT [Suspect]
     Active Substance: DUPILUMAB
     Indication: Dermatitis
  3. CETIRIZINE HCL [Concomitant]
     Active Substance: CETIRIZINE HYDROCHLORIDE
     Dosage: UNK
  4. HYDROXYZINE HYDROCHLORIDE [Concomitant]
     Active Substance: HYDROXYZINE HYDROCHLORIDE
     Dosage: UNK
  5. MUPIROCIN [Concomitant]
     Active Substance: MUPIROCIN
     Dosage: UNK
  6. MOMETASONE FUROATE [Concomitant]
     Active Substance: MOMETASONE FUROATE
     Dosage: UNK
  7. PIMECROLIMUS [Concomitant]
     Active Substance: PIMECROLIMUS
     Dosage: UNK
  8. ELIDEL [Concomitant]
     Active Substance: PIMECROLIMUS
     Dosage: UNK
  9. EUCRISA [Concomitant]
     Active Substance: CRISABOROLE
     Dosage: UNK
  10. HALOG [Concomitant]
     Active Substance: HALCINONIDE
     Dosage: UNK
  11. CHILDREN^S ALL DAY ALLERGY [Concomitant]
     Dosage: UNK

REACTIONS (3)
  - Eczema [Unknown]
  - Eyelid margin crusting [Unknown]
  - Product use in unapproved indication [Unknown]
